FAERS Safety Report 9324526 (Version 6)
Quarter: 2014Q2

REPORT INFORMATION
  Report Type: Spontaneous
  Country: CN (occurrence: CN)
  Receive Date: 20130603
  Receipt Date: 20140421
  Transmission Date: 20141212
  Serious: Yes (Life-Threatening, Hospitalization)
  Sender: FDA-Public Use
  Company Number: CN-BRACCO-000461

PATIENT
  Age: 55 Year
  Sex: Male
  Weight: 100 kg

DRUGS (3)
  1. NORMAL SALINE [Concomitant]
     Route: 042
     Dates: start: 20130523, end: 20130523
  2. NORMAL SALINE [Concomitant]
     Route: 042
     Dates: start: 20130523, end: 20130523
  3. IOPAMIRO [Suspect]
     Indication: ANGIOGRAM
     Dosage: 4MLS/SEC, 10:20AM
     Route: 042
     Dates: start: 20130523, end: 20130523

REACTIONS (7)
  - Anaphylactic shock [Not Recovered/Not Resolved]
  - Laryngeal oedema [Not Recovered/Not Resolved]
  - Gastrointestinal haemorrhage [Recovered/Resolved]
  - Multi-organ failure [Recovered/Resolved]
  - Transaminases increased [Recovered/Resolved]
  - Coma [Not Recovered/Not Resolved]
  - Renal failure [Recovered/Resolved]
